FAERS Safety Report 10472686 (Version 4)
Quarter: 2015Q1

REPORT INFORMATION
  Report Type: Spontaneous
  Country: US (occurrence: None)
  Receive Date: 20140922
  Receipt Date: 20150102
  Transmission Date: 20150720
  Serious: Yes (Hospitalization, Other)
  Sender: FDA-Public Use
  Company Number: 2014-US-011895

PATIENT
  Age: 66 Year
  Sex: Male
  Weight: 101.6 kg

DRUGS (21)
  1. PRILOSEC (OMEPRAZOLE) [Concomitant]
     Active Substance: OMEPRAZOLE MAGNESIUM
  2. LANTUS INSULIN (INSULIN GLARGINE) [Concomitant]
  3. CYCLOBENZAPRINE (CYCLOBENZAPRINE HYDROCHLORIDE) [Concomitant]
  4. GABAPENTIN (GABAPENTIN) [Concomitant]
     Active Substance: GABAPENTIN
  5. HYDROCODONE (HYDROCODONE BITARTRATE ) [Concomitant]
  6. TRAZODONE HCL (TRAZODONE HYDROCHLORIDE) [Concomitant]
  7. FOLIC ACID (FOLIC ACID) [Concomitant]
     Active Substance: FOLIC ACID
  8. BUSPIRONE HYDROCHLORIDE (BUSPIRONE HYDROCHLORIDE) [Concomitant]
  9. PLAVIX (CLOPIDOGREL BISULFATE) [Concomitant]
  10. PROVIGIL [Concomitant]
     Active Substance: MODAFINIL
  11. LIPITOR [Concomitant]
     Active Substance: ATORVASTATIN CALCIUM
  12. AMIDARONE HCL (AMIODARONE HYDROCHLORIDE) [Concomitant]
  13. SYNTHROID [Concomitant]
     Active Substance: LEVOTHYROXINE SODIUM
  14. GLIPIZIDE (GLIPIZIDE) [Concomitant]
     Active Substance: GLIPIZIDE
  15. AMLODIPINE BESYLATE (AMLODIPINE BESILATE) [Concomitant]
     Active Substance: AMLODIPINE BESYLATE
  16. WARFARIN SODIUM  (WARFARIN SODIUM) [Concomitant]
     Active Substance: WARFARIN SODIUM
  17. FERROUS SULFATE [Concomitant]
     Active Substance: FERROUS SULFATE\FERROUS SULFATE, DRIED
  18. XYREM [Suspect]
     Active Substance: SODIUM OXYBATE
     Indication: NARCOLEPSY
     Route: 048
     Dates: start: 200910, end: 2009
  19. ASPIRIN (ACETYLSALICYLIC ACID) [Concomitant]
     Active Substance: ASPIRIN
  20. SERTRALINE HCL (SETRALINE HYDROCHLORIDE) [Concomitant]
  21. CARVEDILOL (CARVEDILOL) [Concomitant]
     Active Substance: CARVEDILOL

REACTIONS (4)
  - Thrombosis [None]
  - Atrial fibrillation [None]
  - Myocardial infarction [None]
  - Pneumonia [None]

NARRATIVE: CASE EVENT DATE: 20140908
